FAERS Safety Report 23130507 (Version 2)
Quarter: 2024Q2

REPORT INFORMATION
  Report Type: Spontaneous
  Country: IT (occurrence: IT)
  Receive Date: 20231031
  Receipt Date: 20240410
  Transmission Date: 20240715
  Serious: Yes (Other)
  Sender: FDA-Public Use
  Company Number: IT-SUN PHARMACEUTICAL INDUSTRIES LTD-2023RR-415402

PATIENT
  Age: 32 Year
  Sex: Male
  Weight: 85 kg

DRUGS (3)
  1. SERTRALINE [Suspect]
     Active Substance: SERTRALINE HYDROCHLORIDE
     Indication: Obsessive thoughts
     Dosage: 50 MILLIGRAM, QD
     Route: 048
     Dates: start: 20210801, end: 20221130
  2. PAROXETINE [Suspect]
     Active Substance: PAROXETINE
     Indication: Obsessive thoughts
     Dosage: 20 MILLIGRAM, UNK
     Route: 048
  3. VALPROATE SODIUM [Concomitant]
     Active Substance: VALPROATE SODIUM
     Indication: Product used for unknown indication
     Dosage: 500 MILLIGRAM, BID
     Route: 048

REACTIONS (2)
  - Erectile dysfunction [Not Recovered/Not Resolved]
  - Orgasm abnormal [Not Recovered/Not Resolved]

NARRATIVE: CASE EVENT DATE: 20210815
